FAERS Safety Report 10305569 (Version 1)
Quarter: 2014Q3

REPORT INFORMATION
  Report Type: Spontaneous
  Country: US (occurrence: None)
  Receive Date: 20140714
  Receipt Date: 20140714
  Transmission Date: 20150326
  Serious: Yes (Death)
  Sender: FDA-Public Use
  Company Number: None

PATIENT
  Age: 63 Year
  Sex: Male
  Weight: 53.2 kg

DRUGS (1)
  1. GATTEX [Suspect]
     Active Substance: TEDUGLUTIDE\WATER
     Indication: SHORT-BOWEL SYNDROME
     Dosage: GATTEX 2.7 MG DAILY SUBCUTANEOUS INJECTION
     Route: 058
     Dates: start: 20140616, end: 20140703

REACTIONS (1)
  - Death [None]

NARRATIVE: CASE EVENT DATE: 20140703
